FAERS Safety Report 15809335 (Version 1)
Quarter: 2019Q1

REPORT INFORMATION
  Report Type: Spontaneous
  Country: US (occurrence: US)
  Receive Date: 20190110
  Receipt Date: 20190110
  Transmission Date: 20190417
  Serious: No
  Sender: FDA-Public Use
  Company Number: US-ASTRAZENECA-2019SE03612

PATIENT
  Sex: Male

DRUGS (1)
  1. FASENRA [Suspect]
     Active Substance: BENRALIZUMAB
     Dosage: 30.0UG UNKNOWN
     Route: 058

REACTIONS (3)
  - Rash [Unknown]
  - Oropharyngeal blistering [Unknown]
  - Rash generalised [Unknown]
